FAERS Safety Report 4685396-8 (Version None)
Quarter: 2005Q2

REPORT INFORMATION
  Report Type: 
  Country: None (occurrence: None)
  Receive Date: 20050608
  Receipt Date: 20050519
  Transmission Date: 20051028
  Serious: Yes (Hospitalization)
  Sender: FDA-Public Use
  Company Number: FR-GLAXOSMITHKLINE-B0382333A

PATIENT
  Age: 66 Year
  Sex: Male

DRUGS (1)
  1. AUGMENTIN [Suspect]
     Indication: BRONCHITIS
     Dosage: 2G PER DAY
     Route: 048
     Dates: start: 20050209, end: 20050215

REACTIONS (5)
  - DERMATITIS BULLOUS [None]
  - ERYTHEMA MULTIFORME [None]
  - HERPES SIMPLEX [None]
  - MUCOUS MEMBRANE DISORDER [None]
  - RASH MACULO-PAPULAR [None]
